FAERS Safety Report 6131973-7 (Version None)
Quarter: 2009Q1

REPORT INFORMATION
  Report Type: 
  Country: None (occurrence: None)
  Receive Date: 20090325
  Receipt Date: 20090311
  Transmission Date: 20090719
  Serious: Yes (Other)
  Sender: FDA-Public Use
  Company Number: NL-ELI_LILLY_AND_COMPANY-NL200902000081

PATIENT
  Sex: Female

DRUGS (1)
  1. CYMBALTA [Suspect]
     Indication: SOCIAL PHOBIA
     Dosage: 60 MG, DAILY (1/D)
     Route: 065
     Dates: start: 20080718

REACTIONS (1)
  - GINGIVITIS ULCERATIVE [None]
